FAERS Safety Report 10751932 (Version 1)
Quarter: 2015Q1

REPORT INFORMATION
  Report Type: Spontaneous
  Country: US (occurrence: US)
  Receive Date: 20150130
  Receipt Date: 20150130
  Transmission Date: 20150721
  Serious: No
  Sender: FDA-Public Use
  Company Number: US-ENDO PHARMACEUTICALS INC.-FORT20140186

PATIENT
  Sex: Male

DRUGS (3)
  1. FORTESTA [Suspect]
     Active Substance: TESTOSTERONE
     Indication: PRODUCT USED FOR UNKNOWN INDICATION
     Dosage: UNK
     Route: 061
     Dates: start: 201306, end: 201406
  2. ANDROGEL [Suspect]
     Active Substance: TESTOSTERONE
     Indication: PRODUCT USED FOR UNKNOWN INDICATION
     Dosage: UNK
     Route: 061
     Dates: start: 2003, end: 2011
  3. ANDROGEL [Suspect]
     Active Substance: TESTOSTERONE
     Dosage: UNK
     Route: 061
     Dates: start: 2011, end: 201306

REACTIONS (3)
  - Anger [Recovered/Resolved]
  - Hypertension [Unknown]
  - Partner stress [Recovered/Resolved]

NARRATIVE: CASE EVENT DATE: 201306
